FAERS Safety Report 9737106 (Version 5)
Quarter: 2014Q2

REPORT INFORMATION
  Report Type: Report from Study
  Country: GB (occurrence: GB)
  Receive Date: 20131206
  Receipt Date: 20140410
  Transmission Date: 20141212
  Serious: Yes (Other)
  Sender: FDA-Public Use
  Company Number: GB-ROCHE-1311406

PATIENT
  Age: 70 Year
  Sex: Female
  Weight: 81.5 kg

DRUGS (8)
  1. RANIBIZUMAB [Suspect]
     Indication: AGE-RELATED MACULAR DEGENERATION
     Route: 050
     Dates: start: 20090326
  2. RANIBIZUMAB [Suspect]
     Route: 050
     Dates: start: 20130121
  3. RANIBIZUMAB [Suspect]
     Dosage: DOSE: 0.5MG/0.05ML, ON 06/MAR/2013, RECEIVED RECENT LAST DOSE
     Route: 050
     Dates: start: 20130306
  4. METFORMIN [Concomitant]
     Route: 065
     Dates: start: 20100223
  5. AMLODIPINE [Concomitant]
     Route: 065
     Dates: start: 20080219
  6. BENDROFLUMETHIAZIDE [Concomitant]
     Route: 065
     Dates: start: 20090223
  7. PERINDOPRIL [Concomitant]
     Route: 065
     Dates: start: 20070110
  8. ASPIRIN [Concomitant]
     Route: 065
     Dates: start: 20050324

REACTIONS (1)
  - Angina pectoris [Not Recovered/Not Resolved]
